FAERS Safety Report 23520776 (Version 1)
Quarter: 2024Q1

REPORT INFORMATION
  Report Type: 
  Country: None (occurrence: None)
  Receive Date: 20240214
  Receipt Date: 20240214
  Transmission Date: 20240409
  Serious: No
  Sender: FDA-Public Use
  Company Number: DE-ROCHE-3337489

PATIENT

DRUGS (16)
  1. OCREVUS [Suspect]
     Active Substance: OCRELIZUMAB
     Dates: start: 20180712, end: 20180726
  2. OCREVUS [Suspect]
     Active Substance: OCRELIZUMAB
     Dates: start: 20190131
  3. ESTRADIOL [Concomitant]
     Active Substance: ESTRADIOL
  4. BACLOFEN [Concomitant]
     Active Substance: BACLOFEN
     Dates: start: 20171110, end: 20200319
  5. BACLOFEN [Concomitant]
     Active Substance: BACLOFEN
     Dates: start: 20200319
  6. NABIXIMOLS [Concomitant]
     Active Substance: NABIXIMOLS
     Dates: start: 20200319
  7. ARCOXIA [Concomitant]
     Active Substance: ETORICOXIB
     Dates: start: 20200725
  8. CITALOPRAM [Concomitant]
     Active Substance: CITALOPRAM HYDROBROMIDE
     Dates: start: 20190328
  9. CANDESARTAN [Concomitant]
     Active Substance: CANDESARTAN
  10. METHYLPREDNISOLONE [Concomitant]
     Active Substance: METHYLPREDNISOLONE
     Dates: start: 20210112, end: 20210114
  11. METHYLPREDNISOLONE [Concomitant]
     Active Substance: METHYLPREDNISOLONE
     Dates: start: 20170310, end: 20170314
  12. GABAPENTIN [Concomitant]
     Active Substance: GABAPENTIN
     Dates: start: 20190725
  13. MODAFINIL [Concomitant]
     Active Substance: MODAFINIL
     Dates: start: 20181022
  14. VIGIL [Concomitant]
     Dates: start: 20190328
  15. BENSERAZIDE\LEVODOPA [Concomitant]
     Active Substance: BENSERAZIDE\LEVODOPA
     Dates: start: 20190328
  16. PROGESTERONE [Concomitant]
     Active Substance: PROGESTERONE

REACTIONS (4)
  - Respiratory failure [None]
  - Atypical pneumonia [None]
  - Pneumonia [None]
  - Hypertension [None]

NARRATIVE: CASE EVENT DATE: 20230307
